FAERS Safety Report 9033011 (Version 2)
Quarter: 2013Q3

REPORT INFORMATION
  Report Type: Spontaneous
  Country: US (occurrence: US)
  Receive Date: 20130128
  Receipt Date: 20130709
  Transmission Date: 20140515
  Serious: Yes (Hospitalization, Disabling, Other)
  Sender: FDA-Public Use
  Company Number: US-009507513-1110USA00450

PATIENT
  Sex: Female
  Weight: 40.82 kg

DRUGS (8)
  1. FOSAMAX [Suspect]
     Indication: OSTEOPOROSIS
     Dosage: 10 MG, QD
     Route: 048
     Dates: start: 199509, end: 200303
  2. FOSAMAX [Suspect]
     Dosage: 70 MG, QW
     Route: 048
     Dates: start: 200303, end: 200703
  3. FOSAMAX PLUS D [Suspect]
     Indication: OSTEOPOROSIS
     Dosage: 70MG/2800IU, QW
     Route: 048
     Dates: start: 20070418, end: 20091022
  4. CALCIUM (UNSPECIFIED) [Concomitant]
     Dosage: 1000 MG, UNK
     Dates: start: 1980
  5. MAGNESIUM (UNSPECIFIED) [Concomitant]
     Dosage: 400 MG, UNK
     Dates: start: 1980
  6. VITAMIN D (UNSPECIFIED) [Concomitant]
     Dosage: 800 IU, UNK
     Dates: start: 1980
  7. HORMONES (UNSPECIFIED) [Concomitant]
     Dates: start: 1990, end: 200708
  8. FORTICAL (CALCIUM CARBONATE) [Concomitant]
     Indication: OSTEOPOROSIS
     Dates: start: 1988

REACTIONS (37)
  - Femur fracture [Unknown]
  - Intramedullary rod insertion [Unknown]
  - Removal of internal fixation [Unknown]
  - Fracture nonunion [Unknown]
  - Bone graft [Unknown]
  - Removal of internal fixation [Unknown]
  - Femoral neck fracture [Unknown]
  - Hip arthroplasty [Unknown]
  - Femur fracture [Unknown]
  - Open reduction of fracture [Unknown]
  - Impaired healing [Unknown]
  - Humerus fracture [Unknown]
  - Fall [Unknown]
  - Osteonecrosis [Unknown]
  - Breast cancer [Unknown]
  - Stress fracture [Unknown]
  - Femur fracture [Recovered/Resolved]
  - Femur fracture [Unknown]
  - Body height decreased [Unknown]
  - Depression [Unknown]
  - Blood cholesterol increased [Unknown]
  - Hypercholesterolaemia [Unknown]
  - Foot fracture [Not Recovered/Not Resolved]
  - Osteoarthritis [Not Recovered/Not Resolved]
  - Musculoskeletal stiffness [Unknown]
  - Kyphoscoliosis [Unknown]
  - Compression fracture [Unknown]
  - Limb asymmetry [Recovered/Resolved]
  - Device failure [Not Recovered/Not Resolved]
  - Osteoporosis [Unknown]
  - Tendinous contracture [Unknown]
  - Tenotomy [Unknown]
  - Anaemia postoperative [Unknown]
  - Pain [Not Recovered/Not Resolved]
  - Constipation [Unknown]
  - Gastrooesophageal reflux disease [Not Recovered/Not Resolved]
  - Oedema peripheral [Unknown]
